FAERS Safety Report 11118239 (Version 1)
Quarter: 2015Q2

REPORT INFORMATION
  Report Type: Spontaneous
  Country: US (occurrence: US)
  Receive Date: 20150518
  Receipt Date: 20150518
  Transmission Date: 20150821
  Serious: Yes (Hospitalization)
  Sender: FDA-Public Use
  Company Number: US-JNJFOC-20150506250

PATIENT
  Sex: Female
  Weight: 81.65 kg

DRUGS (2)
  1. METHOTREXATE [Suspect]
     Active Substance: METHOTREXATE
     Indication: RHEUMATOID ARTHRITIS
     Route: 042
     Dates: start: 1998
  2. REMICADE [Suspect]
     Active Substance: INFLIXIMAB
     Indication: RHEUMATOID ARTHRITIS
     Route: 042
     Dates: start: 1998

REACTIONS (4)
  - Staphylococcal infection [Recovered/Resolved]
  - Lower respiratory tract inflammation [Recovered/Resolved]
  - Pancreatitis [Recovered/Resolved]
  - Arthritis [Unknown]
